FAERS Safety Report 20611202 (Version 1)
Quarter: 2022Q1

REPORT INFORMATION
  Report Type: Spontaneous
  Country: US (occurrence: None)
  Receive Date: 20220317
  Receipt Date: 20220317
  Transmission Date: 20220423
  Serious: No
  Sender: FDA-Public Use
  Company Number: None

PATIENT
  Sex: Female

DRUGS (1)
  1. BENLYSTA [Suspect]
     Active Substance: BELIMUMAB
     Indication: Systemic lupus erythematosus
     Dosage: OTHER FREQUENCY : EVERY7DAYS;?
     Route: 058
     Dates: start: 20211201, end: 20220312

REACTIONS (11)
  - Weight increased [None]
  - Generalised oedema [None]
  - Cushingoid [None]
  - Depression [None]
  - Rash papular [None]
  - Vulvovaginal dryness [None]
  - Hyperkeratosis [None]
  - Asthenia [None]
  - Fatigue [None]
  - Systemic lupus erythematosus [None]
  - Malaise [None]
